FAERS Safety Report 8241428-1 (Version None)
Quarter: 2012Q1

REPORT INFORMATION
  Report Type: 
  Country: None (occurrence: None)
  Receive Date: 20120328
  Receipt Date: 20120323
  Transmission Date: 20120608
  Serious: Yes (Other)
  Sender: FDA-Public Use
  Company Number: US-ABBOTT-11P-163-0716169-00

PATIENT
  Sex: Female

DRUGS (4)
  1. SYNTHROID [Suspect]
     Indication: EXPOSURE VIA SEMEN
     Route: 050
  2. SYNTHROID [Suspect]
     Indication: FOETAL EXPOSURE DURING PREGNANCY
  3. HUMIRA [Suspect]
     Indication: EXPOSURE VIA SEMEN
     Route: 050
  4. HUMIRA [Suspect]
     Indication: FOETAL EXPOSURE DURING PREGNANCY

REACTIONS (1)
  - ABORTION SPONTANEOUS [None]
